FAERS Safety Report 6044645-4 (Version None)
Quarter: 2009Q1

REPORT INFORMATION
  Report Type: 
  Country: None (occurrence: None)
  Receive Date: 20090120
  Receipt Date: 20081215
  Transmission Date: 20090719
  Serious: Yes (Hospitalization, Other)
  Sender: FDA-Public Use
  Company Number: US-PFIZER INC-2008081153

PATIENT
  Sex: Female
  Weight: 68 kg

DRUGS (12)
  1. CHANTIX [Interacting]
     Indication: SMOKING CESSATION THERAPY
     Dates: start: 20080801, end: 20080901
  2. ALPRAZOLAM [Suspect]
     Indication: ANXIETY
  3. SPIRIVA [Concomitant]
  4. ADVAIR DISKUS 100/50 [Concomitant]
  5. ALBUTEROL [Concomitant]
  6. CLARITIN [Concomitant]
  7. LEVOTHYROXINE SODIUM [Concomitant]
  8. LOTREL [Concomitant]
  9. OMEPRAZOLE [Concomitant]
  10. ACETYLSALICYLIC ACID SRT [Concomitant]
  11. TIZANIDINE HCL [Concomitant]
  12. PLAVIX [Concomitant]

REACTIONS (6)
  - ABNORMAL BEHAVIOUR [None]
  - ACUTE PSYCHOSIS [None]
  - ANXIETY [None]
  - DEPRESSION [None]
  - DRUG INTERACTION [None]
  - MEMORY IMPAIRMENT [None]
